FAERS Safety Report 7158411-X (Version None)
Quarter: 2010Q4

REPORT INFORMATION
  Report Type: 
  Country: None (occurrence: None)
  Receive Date: 20101214
  Receipt Date: 20100610
  Transmission Date: 20110411
  Serious: No
  Sender: FDA-Public Use
  Company Number: US-ASTRAZENECA-2010SE27094

PATIENT
  Age: 87 Year
  Sex: Female
  Weight: 65.8 kg

DRUGS (2)
  1. CRESTOR [Suspect]
     Route: 048
  2. ASPIRIN [Concomitant]

REACTIONS (3)
  - ABDOMINAL DISTENSION [None]
  - DYSPEPSIA [None]
  - OEDEMA PERIPHERAL [None]
